FAERS Safety Report 12477104 (Version 1)
Quarter: 2016Q2

REPORT INFORMATION
  Report Type: Report from Study
  Country: KR (occurrence: KR)
  Receive Date: 20160617
  Receipt Date: 20160617
  Transmission Date: 20160815
  Serious: Yes (Disabling)
  Sender: FDA-Public Use
  Company Number: KR-BIOCRYST PHARMACEUTICALS, INC.-2014BCR00495

PATIENT
  Age: 40 Year
  Sex: Female

DRUGS (5)
  1. ENSID ER C TAB [Concomitant]
     Indication: PYREXIA
     Dosage: UNK
     Dates: start: 20120213, end: 20120218
  2. MUTEN [Concomitant]
     Indication: ANTIINFLAMMATORY THERAPY
     Dates: start: 20120213, end: 20120218
  3. LONOPHEN C TAB [Concomitant]
     Indication: MYALGIA
     Dosage: UNK
     Dates: start: 20120213, end: 20120218
  4. PERAMIVIR [Suspect]
     Active Substance: PERAMIVIR
     Indication: INFLUENZA
     Route: 042
     Dates: start: 20120213, end: 20120213
  5. CLIF [Concomitant]
     Indication: PHARYNGITIS
     Dosage: UNK
     Dates: start: 20120213, end: 20120218

REACTIONS (1)
  - Sensory loss [Recovered/Resolved]

NARRATIVE: CASE EVENT DATE: 20120220
